FAERS Safety Report 8293538-0 (Version None)
Quarter: 2012Q2

REPORT INFORMATION
  Report Type: 
  Country: None (occurrence: None)
  Receive Date: 20120418
  Receipt Date: 20120410
  Transmission Date: 20120825
  Serious: Yes (Life-Threatening, Hospitalization, Disabling)
  Sender: FDA-Public Use
  Company Number: CA-AMGEN-CANSP2012022867

PATIENT
  Age: 32 Month
  Sex: Male
  Weight: 12 kg

DRUGS (6)
  1. PREVACID [Concomitant]
     Route: 048
  2. BACTRIM [Concomitant]
     Route: 048
  3. PREDNISONE [Concomitant]
     Route: 048
  4. DESFERAL [Concomitant]
     Route: 042
  5. TRANEXAMIC ACID [Concomitant]
     Route: 048
  6. NPLATE [Suspect]
     Indication: PRODUCT USED FOR UNKNOWN INDICATION
     Dosage: 60 MUG, QWK
     Route: 058

REACTIONS (1)
  - MUSCULAR WEAKNESS [None]
